FAERS Safety Report 10970548 (Version 2)
Quarter: 2015Q2

REPORT INFORMATION
  Report Type: Spontaneous
  Country: US (occurrence: None)
  Receive Date: 20150327
  Receipt Date: 20150414
  Transmission Date: 20150821
  Serious: Yes (Other)
  Sender: FDA-Public Use
  Company Number: VIT-2015-00596

PATIENT
  Age: 66 Year
  Sex: Female
  Weight: 79.5 kg

DRUGS (1)
  1. VELPHORO [Suspect]
     Active Substance: FERRIC OXYHYDROXIDE
     Indication: HYPERPHOSPHATAEMIA
     Dosage: 1 TOTAL
     Dates: start: 20140818, end: 20140818

REACTIONS (2)
  - Dry throat [None]
  - Urticaria [None]

NARRATIVE: CASE EVENT DATE: 20140818
